FAERS Safety Report 21797589 (Version 3)
Quarter: 2023Q2

REPORT INFORMATION
  Report Type: Spontaneous
  Country: US (occurrence: US)
  Receive Date: 20221230
  Receipt Date: 20230621
  Transmission Date: 20230722
  Serious: Yes (Other)
  Sender: FDA-Public Use
  Company Number: US-AMNEAL PHARMACEUTICALS-2022-AMRX-04217

PATIENT
  Sex: Male
  Weight: 82 kg

DRUGS (3)
  1. BACLOFEN [Suspect]
     Active Substance: BACLOFEN
     Indication: Product used for unknown indication
     Dosage: 200 MCG/ML PER DAY
     Route: 037
  2. BACLOFEN [Suspect]
     Active Substance: BACLOFEN
     Dosage: 100 MCG/ML PER DAY
     Dates: end: 20230608
  3. BACLOFEN [Suspect]
     Active Substance: BACLOFEN
     Dosage: 96 MCG/DAY PER DAY

REACTIONS (2)
  - Ankylosing spondylitis [Recovered/Resolved]
  - Implant site infection [Unknown]
